FAERS Safety Report 7343313-6 (Version None)
Quarter: 2011Q1

REPORT INFORMATION
  Report Type: 
  Country: None (occurrence: None)
  Receive Date: 20110310
  Receipt Date: 20110307
  Transmission Date: 20110831
  Serious: Yes (Disabling, Other)
  Sender: FDA-Public Use
  Company Number: US-PFIZER INC-2010178507

PATIENT
  Sex: Male

DRUGS (1)
  1. CHANTIX [Suspect]
     Indication: SMOKING CESSATION THERAPY
     Dosage: 0.5 TO 1 MG
     Dates: start: 20070818

REACTIONS (5)
  - COGNITIVE DISORDER [None]
  - MAJOR DEPRESSION [None]
  - ANXIETY [None]
  - DISTURBANCE IN ATTENTION [None]
  - FATIGUE [None]
